FAERS Safety Report 14196557 (Version 1)
Quarter: 2017Q4

REPORT INFORMATION
  Report Type: Spontaneous
  Country: US (occurrence: US)
  Receive Date: 20171116
  Receipt Date: 20171116
  Transmission Date: 20180321
  Serious: No
  Sender: FDA-Public Use
  Company Number: US-NOVOPROD-565826

PATIENT
  Age: 91 Year
  Sex: Male

DRUGS (1)
  1. NOVOLOG MIX 70/30 [Suspect]
     Active Substance: INSULIN ASPART
     Indication: TYPE 2 DIABETES MELLITUS
     Dosage: 27 TO 30 PER DAY
     Route: 058
     Dates: start: 201701

REACTIONS (4)
  - Product quality issue [Not Recovered/Not Resolved]
  - Blood glucose increased [Not Recovered/Not Resolved]
  - Dehydration [Recovered/Resolved]
  - Drug ineffective [Not Recovered/Not Resolved]

NARRATIVE: CASE EVENT DATE: 2017
